FAERS Safety Report 6753997-9 (Version None)
Quarter: 2010Q2

REPORT INFORMATION
  Report Type: 
  Country: None (occurrence: None)
  Receive Date: 20100603
  Receipt Date: 20100526
  Transmission Date: 20101027
  Serious: Yes (Other)
  Sender: FDA-Public Use
  Company Number: B0605231A

PATIENT
  Sex: Female
  Weight: 93.8 kg

DRUGS (9)
  1. LAPATINIB [Suspect]
     Indication: BREAST CANCER
     Dosage: 1500MG PER DAY
     Route: 048
     Dates: start: 20091020, end: 20091103
  2. PACLITAXEL [Suspect]
     Indication: BREAST CANCER
     Dosage: 80MGM2 WEEKLY
     Route: 042
     Dates: start: 20091020
  3. PIRITON [Concomitant]
     Dates: start: 20091113
  4. GAVISCON [Concomitant]
     Dates: start: 20091027
  5. LOPERAMIDE [Concomitant]
  6. ZANTAC [Concomitant]
     Route: 042
  7. ZOFRAN [Concomitant]
     Route: 042
  8. DEXAMETHASONE [Concomitant]
     Route: 042
  9. TRASTUZUMAB [Concomitant]
     Dates: start: 20091124

REACTIONS (1)
  - ALANINE AMINOTRANSFERASE INCREASED [None]
